FAERS Safety Report 18593337 (Version 1)
Quarter: 2020Q4

REPORT INFORMATION
  Report Type: Spontaneous
  Country: US (occurrence: US)
  Receive Date: 20201209
  Receipt Date: 20201209
  Transmission Date: 20210114
  Serious: No
  Sender: FDA-Public Use
  Company Number: US-AMGEN-USASP2020198673

PATIENT
  Sex: Female

DRUGS (10)
  1. EXEMESTANE. [Concomitant]
     Active Substance: EXEMESTANE
  2. PEGFILGRASTIM [Concomitant]
     Active Substance: PEGFILGRASTIM
  3. PACLITAXEL. [Concomitant]
     Active Substance: PACLITAXEL
  4. ESTROGEN [Concomitant]
     Active Substance: ESTROGENS
  5. ELIQUIS [Concomitant]
     Active Substance: APIXABAN
  6. ANASTROZOLE. [Concomitant]
     Active Substance: ANASTROZOLE
  7. PERJETA [Concomitant]
     Active Substance: PERTUZUMAB
  8. HERCEPTIN [Concomitant]
     Active Substance: TRASTUZUMAB
  9. DOCETAXEL ANHYDROUS. [Concomitant]
     Active Substance: DOCETAXEL ANHYDROUS
  10. PROLIA [Suspect]
     Active Substance: DENOSUMAB
     Indication: PRODUCT USED FOR UNKNOWN INDICATION
     Dosage: UNK
     Route: 065

REACTIONS (1)
  - Adverse event [Unknown]
